FAERS Safety Report 9070270 (Version 1)
Quarter: 2013Q1

REPORT INFORMATION
  Report Type: Spontaneous
  Country: US (occurrence: US)
  Receive Date: 20130215
  Receipt Date: 20130215
  Transmission Date: 20140127
  Serious: Yes (Hospitalization)
  Sender: FDA-Public Use
  Company Number: US-ROXANE LABORATORIES, INC.-2013-RO-00239RO

PATIENT
  Age: 21 Year
  Sex: Male

DRUGS (2)
  1. RISPERIDONE [Suspect]
     Indication: SCHIZOPHRENIFORM DISORDER
     Dosage: 4 MG
     Route: 048
  2. RISPERIDONE [Suspect]
     Dosage: 6 MG
     Route: 048

REACTIONS (2)
  - Psychotic disorder [Unknown]
  - Priapism [Recovered/Resolved]
